FAERS Safety Report 5018356-8 (Version None)
Quarter: 2006Q2

REPORT INFORMATION
  Report Type: 
  Country: None (occurrence: None)
  Receive Date: 20060530
  Receipt Date: 20060519
  Transmission Date: 20061013
  Serious: Yes (Other)
  Sender: FDA-Public Use
  Company Number: 2006049823

PATIENT
  Age: 79 Year
  Sex: Male
  Weight: 77 kg

DRUGS (10)
  1. FRAGMIN [Suspect]
     Indication: ILL-DEFINED DISORDER
     Dosage: INTRAVENOUS
     Route: 042
  2. FRAGMIN [Suspect]
  3. FRAGMIN [Suspect]
  4. AMLODIPINE [Concomitant]
  5. CALCIDIA (CALCIUM CARBONATE) [Concomitant]
  6. KARDEGIC (ACETYLSALICYLATE LYSINE) [Concomitant]
  7. OMEPRAZOLE [Concomitant]
  8. PLAVIX [Concomitant]
  9. TAHOR (ATORVASTATIN) [Concomitant]
  10. UN-ALFA (ALFACALCIDOL) [Concomitant]

REACTIONS (2)
  - DRUG EFFECT DECREASED [None]
  - THROMBOSIS [None]
